FAERS Safety Report 15687049 (Version 1)
Quarter: 2018Q4

REPORT INFORMATION
  Report Type: Spontaneous
  Country: DK (occurrence: DK)
  Receive Date: 20181204
  Receipt Date: 20181204
  Transmission Date: 20190205
  Serious: Yes (Life-Threatening, Hospitalization, Other)
  Sender: FDA-Public Use
  Company Number: DK-BRISTOL-MYERS SQUIBB COMPANY-BMS-2018-113907

PATIENT
  Age: 51 Year
  Sex: Female
  Weight: 53 kg

DRUGS (2)
  1. OPDIVO [Suspect]
     Active Substance: NIVOLUMAB
     Indication: MALIGNANT MELANOMA
     Dosage: 318 MG, Q4WK
     Route: 042
     Dates: start: 20180910, end: 20181120
  2. LOCOID [Concomitant]
     Active Substance: HYDROCORTISONE BUTYRATE
     Indication: ECZEMA
     Dosage: 1 DF, UNK
     Route: 003
     Dates: start: 2017

REACTIONS (10)
  - Lip swelling [Recovered/Resolved]
  - Urticaria [Not Recovered/Not Resolved]
  - Prescribed underdose [Unknown]
  - Periorbital swelling [Recovered/Resolved]
  - Blood pressure systolic decreased [Recovered/Resolved]
  - Pruritus [Recovered/Resolved]
  - Anaphylactic reaction [Recovering/Resolving]
  - Lip pruritus [Recovered/Resolved]
  - Malaise [Recovered/Resolved]
  - Altered state of consciousness [Recovered/Resolved]

NARRATIVE: CASE EVENT DATE: 20181120
